FAERS Safety Report 23020233 (Version 1)
Quarter: 2023Q4

REPORT INFORMATION
  Report Type: Spontaneous
  Country: SV (occurrence: SV)
  Receive Date: 20231003
  Receipt Date: 20231003
  Transmission Date: 20240110
  Serious: Yes (Other)
  Sender: FDA-Public Use
  Company Number: SV-002147023-NVSC2023SV211443

PATIENT
  Sex: Male

DRUGS (1)
  1. GLIVEC [Suspect]
     Active Substance: IMATINIB MESYLATE
     Indication: Chronic myeloid leukaemia
     Dosage: 400 MG (4 X 100MG)
     Route: 065

REACTIONS (5)
  - Gastric cancer [Unknown]
  - Throat cancer [Unknown]
  - Second primary malignancy [Unknown]
  - Drug intolerance [Unknown]
  - Eating disorder [Unknown]
